FAERS Safety Report 6574426-4 (Version None)
Quarter: 2010Q2

REPORT INFORMATION
  Report Type: 
  Country: None (occurrence: None)
  Receive Date: 20100120
  Receipt Date: 20100108
  Transmission Date: 20101027
  Serious: Yes (Hospitalization, Other)
  Sender: FDA-Public Use
  Company Number: THYM-1001213

PATIENT
  Age: 58 Year
  Sex: Male
  Weight: 67 kg

DRUGS (12)
  1. THYMOGLOBULIN [Suspect]
     Indication: APLASTIC ANAEMIA
     Dosage: 230 MG, QD, INTRAVENOUS
     Route: 042
     Dates: start: 20090623, end: 20090627
  2. CLOSTRIDIUM BUTYRICUM) [Concomitant]
  3. FAMOTIDINE [Concomitant]
  4. CYCLOSPORINE [Concomitant]
  5. MAGNESIUM OXIDE [Concomitant]
  6. METENOLONE ACETATE [Concomitant]
  7. POLYMYXIN B SULFATE (POLYMYXIN B SULFATE) [Concomitant]
  8. METHYLPREDNISOLONE SODIUM SUCCINATE [Concomitant]
  9. DEXCHLORPHENIRAMINE MALEATE [Concomitant]
  10. PREDNISOLONE [Concomitant]
  11. SENNOSIDE A (SENNOSIDE A) [Concomitant]
  12. PENTAMIDINE ISETHIONATE [Concomitant]

REACTIONS (14)
  - CHILLS [None]
  - ERYTHEMA MULTIFORME [None]
  - FEBRILE NEUTROPENIA [None]
  - FUNGAL INFECTION [None]
  - INSOMNIA [None]
  - OEDEMA [None]
  - PETECHIAE [None]
  - PLATELET COUNT DECREASED [None]
  - PRURITUS [None]
  - PYREXIA [None]
  - RENAL FAILURE [None]
  - SERUM SICKNESS [None]
  - STAPHYLOCOCCAL SEPSIS [None]
  - WEIGHT INCREASED [None]
